FAERS Safety Report 23833430 (Version 2)
Quarter: 2024Q2

REPORT INFORMATION
  Report Type: Spontaneous
  Country: US (occurrence: US)
  Receive Date: 20240508
  Receipt Date: 20240530
  Transmission Date: 20240716
  Serious: No
  Sender: FDA-Public Use
  Company Number: US-VIIV HEALTHCARE LIMITED-US2024054847

PATIENT
  Age: 63 Year

DRUGS (2)
  1. RILPIVIRINE [Suspect]
     Active Substance: RILPIVIRINE
     Indication: HIV infection
     Dosage: UNK, EVERY 56 DAYS
     Route: 065
     Dates: start: 20230801, end: 20231125
  2. CABOTEGRAVIR [Suspect]
     Active Substance: CABOTEGRAVIR
     Indication: HIV infection
     Dosage: UNK, EVERY 56 DAYS
     Route: 065
     Dates: start: 20230801, end: 20231125

REACTIONS (1)
  - Depression [Not Recovered/Not Resolved]
